FAERS Safety Report 5217236-2 (Version None)
Quarter: 2007Q1

REPORT INFORMATION
  Report Type: 
  Country: None (occurrence: None)
  Receive Date: 20070122
  Receipt Date: 20070122
  Transmission Date: 20070707
  Serious: Yes (Hospitalization)
  Sender: FDA-Public Use
  Company Number: None

PATIENT
  Age: 64 Year
  Sex: Female
  Weight: 54.8852 kg

DRUGS (1)
  1. SERTRALINE [Suspect]
     Indication: DEPRESSED MOOD
     Dosage: 25 MG PO DAILY X 7 D THEN 50 MG DAILY
     Route: 048
     Dates: start: 20061013, end: 20061102

REACTIONS (2)
  - CHRONIC OBSTRUCTIVE PULMONARY DISEASE [None]
  - CONFUSIONAL STATE [None]
